FAERS Safety Report 17016612 (Version 2)
Quarter: 2019Q4

REPORT INFORMATION
  Report Type: Spontaneous
  Country: US (occurrence: US)
  Receive Date: 20191111
  Receipt Date: 20191209
  Transmission Date: 20200122
  Serious: No
  Sender: FDA-Public Use
  Company Number: US-PFIZER INC-2019485696

PATIENT
  Age: 50 Year
  Sex: Female

DRUGS (4)
  1. VITAMIN D [Concomitant]
     Active Substance: VITAMIN D NOS
     Dosage: 400 IU, UNK
  2. IBRANCE [Suspect]
     Active Substance: PALBOCICLIB
     Indication: ILL-DEFINED DISORDER
     Dosage: 125 MG, CYCLIC [DAILY FOR 21 DAYS ON, 7 OFF]
     Route: 048
     Dates: start: 20191026, end: 2019
  3. LETROZOLE. [Concomitant]
     Active Substance: LETROZOLE
     Dosage: 2.5 MG, UNK
  4. IBRANCE [Suspect]
     Active Substance: PALBOCICLIB
     Indication: BREAST CANCER FEMALE
     Dosage: 125 MG, CYCLIC [DAILY FOR 21 DAYS ON, 7 OFF]
     Route: 048
     Dates: start: 20191026, end: 2019

REACTIONS (2)
  - White blood cell count decreased [Unknown]
  - Pain in extremity [Unknown]

NARRATIVE: CASE EVENT DATE: 2019
